FAERS Safety Report 5807716-0 (Version None)
Quarter: 2008Q3

REPORT INFORMATION
  Report Type: 
  Country: None (occurrence: None)
  Receive Date: 20080711
  Receipt Date: 20080703
  Transmission Date: 20090109
  Serious: Yes (Death)
  Sender: FDA-Public Use
  Company Number: KR-ABBOTT-08P-090-0460834-00

PATIENT

DRUGS (6)
  1. SEVOFLURANE [Suspect]
     Indication: ANAESTHESIA
     Dosage: OPERATION: 5 HRS 30 MIN; 2-4 VOL/%
  2. SEVOFLURANE [Suspect]
     Dosage: AFTER OPERATION ENDING:1 HR 30MIN;1-2 VOL/%
  3. DOPAMINE HCL [Concomitant]
     Indication: BLOOD PRESSURE MANAGEMENT
  4. DOBUTAMINE HCL [Concomitant]
     Indication: BLOOD PRESSURE MANAGEMENT
  5. FENTANYL [Concomitant]
     Indication: MAINTENANCE OF ANAESTHESIA
  6. VECURONIUM BROMIDE [Concomitant]
     Indication: MAINTENANCE OF ANAESTHESIA

REACTIONS (1)
  - ACUTE HEPATIC FAILURE [None]
